FAERS Safety Report 23743091 (Version 1)
Quarter: 2024Q2

REPORT INFORMATION
  Report Type: Report from Study
  Country: DO (occurrence: DO)
  Receive Date: 20240415
  Receipt Date: 20240415
  Transmission Date: 20240715
  Serious: Yes (Hospitalization, Other)
  Sender: FDA-Public Use
  Company Number: DO-BAYER-2024A052906

PATIENT
  Age: 77 Year
  Sex: Female

DRUGS (5)
  1. RIVAROXABAN [Suspect]
     Active Substance: RIVAROXABAN
     Indication: Atrial fibrillation
     Dosage: 20 MG
     Route: 048
     Dates: start: 20191205, end: 20240330
  2. CORENTEL H [Concomitant]
  3. DIMARD [Concomitant]
  4. LASIX [Concomitant]
     Active Substance: FUROSEMIDE
  5. ERYTHROMYCIN [Concomitant]
     Active Substance: ERYTHROMYCIN

REACTIONS (5)
  - Haematemesis [Unknown]
  - Red blood cell count decreased [Unknown]
  - Hypotension [Not Recovered/Not Resolved]
  - Venous thrombosis limb [Unknown]
  - Pain [Unknown]

NARRATIVE: CASE EVENT DATE: 20240301
